FAERS Safety Report 4625773-4 (Version None)
Quarter: 2005Q1

REPORT INFORMATION
  Report Type: 
  Country: None (occurrence: None)
  Receive Date: 20050330
  Receipt Date: 20050315
  Transmission Date: 20050727
  Serious: Yes (Death)
  Sender: FDA-Public Use
  Company Number: FR_050306034

PATIENT
  Age: 30 Year
  Sex: Male

DRUGS (3)
  1. ZYPREXA [Suspect]
     Indication: PSYCHOTIC DISORDER
     Dosage: 10 MG/1 DAY
     Dates: start: 20020101
  2. VALIUM [Concomitant]
  3. DEROXATE (PAROXETINE HYDROCHLORIDE) [Concomitant]

REACTIONS (4)
  - ANXIETY DISORDER [None]
  - DEPRESSED MOOD [None]
  - DYSPNOEA [None]
  - DYSURIA [None]
